FAERS Safety Report 13764265 (Version 2)
Quarter: 2017Q3

REPORT INFORMATION
  Report Type: Spontaneous
  Country: IT (occurrence: IT)
  Receive Date: 20170718
  Receipt Date: 20170721
  Transmission Date: 20171127
  Serious: Yes (Hospitalization, Other)
  Sender: FDA-Public Use
  Company Number: IT-PFIZER INC-2017310413

PATIENT
  Age: 51 Year
  Sex: Female

DRUGS (5)
  1. CARBAMAZEPINA EG [Concomitant]
     Dosage: 1200 MG, UNK
     Route: 048
  2. FLUNOX [Concomitant]
     Active Substance: FLURAZEPAM HYDROCHLORIDE
     Dosage: 15 MG, UNK
     Route: 048
  3. TOFRANIL [Concomitant]
     Active Substance: IMIPRAMINE HYDROCHLORIDE
     Dosage: 50 UG, UNK
     Route: 048
  4. TAVOR (LORAZEPAM) [Suspect]
     Active Substance: LORAZEPAM
     Indication: ANXIETY
     Dosage: 50 MG, TOTAL
     Route: 048
     Dates: start: 20170309, end: 20170309
  5. ENTUMIN [Concomitant]
     Active Substance: CLOTHIAPINE
     Dosage: 15 MG, UNK
     Route: 048

REACTIONS (5)
  - Slow speech [Recovered/Resolved]
  - Drug abuse [Recovered/Resolved]
  - Bradyphrenia [Recovered/Resolved]
  - Intentional overdose [Recovered/Resolved]
  - Intentional self-injury [Recovered/Resolved]

NARRATIVE: CASE EVENT DATE: 20170309
